FAERS Safety Report 4590600-0 (Version None)
Quarter: 2005Q1

REPORT INFORMATION
  Report Type: 
  Country: None (occurrence: None)
  Receive Date: 20050224
  Receipt Date: 20050218
  Transmission Date: 20050727
  Serious: Yes (Other)
  Sender: FDA-Public Use
  Company Number: DE-GLAXOSMITHKLINE-D0045943A

PATIENT
  Age: 31 Year
  Sex: Female
  Weight: 54.8 kg

DRUGS (3)
  1. SEROXAT [Suspect]
     Indication: PERSONALITY DISORDER
     Dosage: 20MG PER DAY
     Route: 048
     Dates: start: 20010119
  2. NEUROCIL [Suspect]
     Dosage: 25MG PER DAY
     Route: 065
     Dates: start: 20010211, end: 20010211
  3. CEBION [Concomitant]
     Dosage: 1TAB PER DAY
     Route: 048
     Dates: start: 20010116

REACTIONS (2)
  - DRUG INTERACTION [None]
  - SYNCOPE [None]
